FAERS Safety Report 13438139 (Version 2)
Quarter: 2017Q2

REPORT INFORMATION
  Report Type: Spontaneous
  Country: US (occurrence: US)
  Receive Date: 20170412
  Receipt Date: 20170623
  Transmission Date: 20170830
  Serious: Yes (Hospitalization, Other)
  Sender: FDA-Public Use
  Company Number: US-AMNEAL PHARMACEUTICALS-2017AMN00433

PATIENT
  Age: 66 Year
  Sex: Male
  Weight: 85.99 kg

DRUGS (4)
  1. TANEZUMAB [Suspect]
     Active Substance: TANEZUMAB
     Indication: OSTEOARTHRITIS
     Dosage: UNK, EVERY 8 WEEKS
     Route: 058
     Dates: start: 20161021, end: 20170301
  2. TANEZUMAB [Suspect]
     Active Substance: TANEZUMAB
     Indication: ARTHRALGIA
  3. ZESTRIL [Concomitant]
     Active Substance: LISINOPRIL
     Indication: HYPERTENSION
     Dosage: UNK
     Dates: start: 2015
  4. NAPROXEN. [Suspect]
     Active Substance: NAPROXEN
     Indication: ARTHRALGIA
     Dosage: 500 MG, 2X/DAY
     Route: 048
     Dates: start: 20161021, end: 20170301

REACTIONS (5)
  - Dizziness [Recovered/Resolved]
  - Anaemia [Recovered/Resolved]
  - Haemorrhoids [Unknown]
  - Gastrointestinal haemorrhage [Recovered/Resolved]
  - Haematochezia [Recovered/Resolved]

NARRATIVE: CASE EVENT DATE: 20170301
